FAERS Safety Report 8223773-9 (Version None)
Quarter: 2012Q1

REPORT INFORMATION
  Report Type: 
  Country: None (occurrence: None)
  Receive Date: 20120321
  Receipt Date: 20120312
  Transmission Date: 20120608
  Serious: Yes (Hospitalization)
  Sender: FDA-Public Use
  Company Number: US-BAYER-2011-117867

PATIENT
  Sex: Female
  Weight: 51.701 kg

DRUGS (13)
  1. DEPLIN (METHYLFOLATE) [Concomitant]
     Indication: DEPRESSION
     Dosage: 7.5 MG, ONCE DAILY
     Route: 048
     Dates: start: 20101201
  2. MAGNESIUM HYDROXIDE TAB [Concomitant]
     Indication: GASTROOESOPHAGEAL REFLUX DISEASE
     Dosage: UNK
     Dates: start: 20110101
  3. VITAMIN D2 [Concomitant]
     Indication: VITAMIN SUPPLEMENTATION
     Dosage: 5000 UNITS EVERY WEEK
     Route: 048
  4. DEPLIN (METHYLFOLATE) [Concomitant]
     Indication: ANXIETY
  5. LOESTRIN 1.5/30 [Concomitant]
  6. CYMBALTA [Concomitant]
     Indication: DEPRESSION
     Dosage: 30 MG, ONCE DAILY
     Route: 048
     Dates: start: 20101101
  7. CYMBALTA [Concomitant]
     Indication: ANXIETY
  8. PEPCID AC [Concomitant]
     Indication: GASTROOESOPHAGEAL REFLUX DISEASE
     Dosage: 20 MG,DAILY
     Route: 048
     Dates: start: 20110101
  9. CONCERTA [Concomitant]
     Indication: DISTURBANCE IN ATTENTION
     Dosage: 36 MG EVERY MORNING
     Route: 048
     Dates: start: 20101201
  10. PROVENTIL-HFA [Concomitant]
     Indication: WHEEZING
     Dosage: 90 MCG INHALTION,2 PUFFS 4 TIMES DAILY
  11. DROSPIRENONE AND ETHINYL ESTRADIOL [Suspect]
     Indication: CONTRACEPTION
     Dosage: UNK
     Dates: start: 20090101, end: 20110801
  12. YAZ [Suspect]
     Indication: CONTRACEPTION
     Dosage: UNK
     Dates: start: 20090201, end: 20110901
  13. DEPLIN (METHYLFOLATE) [Concomitant]
     Indication: MOOD ALTERED

REACTIONS (2)
  - GALLBLADDER DISORDER [None]
  - CHOLECYSTITIS CHRONIC [None]
